FAERS Safety Report 6164797-5 (Version None)
Quarter: 2009Q2

REPORT INFORMATION
  Report Type: 
  Country: None (occurrence: None)
  Receive Date: 20090423
  Receipt Date: 20090417
  Transmission Date: 20091009
  Serious: No
  Sender: FDA-Public Use
  Company Number: US-B.I. PHARMACEUTICALS,INC./RIDGEFIELD-2009-BP-04875BP

PATIENT
  Age: 45 Year
  Sex: Male

DRUGS (3)
  1. FLOMAX [Suspect]
  2. MICARDIS [Suspect]
     Indication: HYPERTENSION
  3. AVODART [Concomitant]

REACTIONS (2)
  - POLLAKIURIA [None]
  - URINARY INCONTINENCE [None]
